FAERS Safety Report 25036081 (Version 1)
Quarter: 2025Q1

REPORT INFORMATION
  Report Type: Spontaneous
  Country: US (occurrence: US)
  Receive Date: 20250304
  Receipt Date: 20250304
  Transmission Date: 20250408
  Serious: No
  Sender: FRESENIUS KABI
  Company Number: US-FreseniusKabi-FK202503004

PATIENT
  Age: 7 Month

DRUGS (1)
  1. SMOFLIPID [Suspect]
     Active Substance: FISH OIL\MEDIUM-CHAIN TRIGLYCERIDES\OLIVE OIL\SOYBEAN OIL
     Indication: Parenteral nutrition

REACTIONS (1)
  - Hypertriglyceridaemia [Unknown]
